FAERS Safety Report 5775063-1 (Version None)
Quarter: 2008Q2

REPORT INFORMATION
  Report Type: 
  Country: None (occurrence: None)
  Receive Date: 20080612
  Receipt Date: 20080602
  Transmission Date: 20081010
  Serious: Yes (Hospitalization)
  Sender: FDA-Public Use
  Company Number: 2008AL004765

PATIENT
  Age: 62 Year
  Sex: Female

DRUGS (4)
  1. DIGOXIN [Suspect]
     Dosage: .25MG DAILY PO
     Route: 048
  2. ISOSORB [Concomitant]
  3. CIPROFLOXACIN HCL [Concomitant]
  4. ENALAPRIL MALEATE [Concomitant]

REACTIONS (4)
  - CARDIOACTIVE DRUG LEVEL INCREASED [None]
  - DYSGEUSIA [None]
  - THERAPEUTIC AGENT TOXICITY [None]
  - VOMITING [None]
